FAERS Safety Report 11468431 (Version 1)
Quarter: 2015Q3

REPORT INFORMATION
  Report Type: Spontaneous
  Country: US (occurrence: None)
  Receive Date: 20150904
  Receipt Date: 20150904
  Transmission Date: 20151125
  Serious: No
  Sender: FDA-Public Use
  Company Number: None

PATIENT
  Age: 24 Year
  Sex: Female
  Weight: 77.11 kg

DRUGS (2)
  1. NUVARING [Suspect]
     Active Substance: ETHINYL ESTRADIOL\ETONOGESTREL
     Indication: CONTRACEPTION
     Dosage: 1 RING
     Route: 067
     Dates: start: 20150515, end: 20150903
  2. FLUOXETINE [Concomitant]
     Active Substance: FLUOXETINE\FLUOXETINE HYDROCHLORIDE

REACTIONS (5)
  - Mood swings [None]
  - Feelings of worthlessness [None]
  - Emotional disorder [None]
  - Self-injurious ideation [None]
  - Depression [None]

NARRATIVE: CASE EVENT DATE: 20150902
